FAERS Safety Report 9369619 (Version 3)
Quarter: 2013Q3

REPORT INFORMATION
  Report Type: Spontaneous
  Country: US (occurrence: US)
  Receive Date: 20130626
  Receipt Date: 20130812
  Transmission Date: 20140515
  Serious: Yes (Hospitalization, Other)
  Sender: FDA-Public Use
  Company Number: US-PFIZER INC-2013189103

PATIENT
  Age: 37 Year
  Sex: Female

DRUGS (7)
  1. LYRICA [Suspect]
     Indication: NEUROPATHY PERIPHERAL
     Dosage: 75 MG, 2X/DAY (BID)
     Route: 048
     Dates: start: 201212, end: 201305
  2. LYRICA [Suspect]
     Dosage: 75 MG, 2X/DAY
     Route: 048
     Dates: start: 201305, end: 201306
  3. PROZAC [Concomitant]
     Indication: DEPRESSION
     Dosage: 20 MG, 1X/DAY (QD)
  4. DILAUDID [Concomitant]
     Dosage: 2 MG, Q 6H AS NEEDED (PRN)
  5. VENLAFAXINE [Concomitant]
     Dosage: 75 MG, 3X/DAY (TID)
  6. BUSPIRONE [Concomitant]
     Dosage: 5 MG, 3X/DAY (TID)
  7. LIBRAX [Concomitant]
     Dosage: 2.5-5MG, AS NEEDED (PRN)

REACTIONS (6)
  - Pain [Unknown]
  - Obesity [Unknown]
  - Malaise [Unknown]
  - Night sweats [Unknown]
  - Nausea [Unknown]
  - Weight decreased [Unknown]
